FAERS Safety Report 4435141-6 (Version None)
Quarter: 2004Q3

REPORT INFORMATION
  Report Type: 
  Country: None (occurrence: None)
  Receive Date: 20040827
  Receipt Date: 20040818
  Transmission Date: 20050211
  Serious: Yes (Hospitalization)
  Sender: FDA-Public Use
  Company Number: JP-MERCK-0408USA01784

PATIENT
  Age: 86 Year
  Sex: Female

DRUGS (6)
  1. [THERAPY UNSPECIFIED] [Concomitant]
     Indication: HYPERTENSION
     Route: 065
  2. [THERAPY UNSPECIFIED] [Concomitant]
     Route: 042
  3. PEPCID RPD [Suspect]
     Route: 048
  4. HERBS (UNSPECIFIED) [Suspect]
     Route: 065
  5. NONSTEROIDAL ANTI-INFLAMMATORY DRUG (UNSPECIFIED) [Concomitant]
     Route: 065
  6. STATIN (UNSPECIFIED) [Concomitant]
     Route: 065

REACTIONS (3)
  - FALL [None]
  - FEELING ABNORMAL [None]
  - INTERSTITIAL LUNG DISEASE [None]
